FAERS Safety Report 12454583 (Version 1)
Quarter: 2016Q2

REPORT INFORMATION
  Report Type: Spontaneous
  Country: IN (occurrence: IN)
  Receive Date: 20160610
  Receipt Date: 20160610
  Transmission Date: 20160815
  Serious: Yes (Hospitalization)
  Sender: FDA-Public Use
  Company Number: IN-BAUSCH-BL-2016-013297

PATIENT
  Age: 47 Year
  Sex: Male
  Weight: 66 kg

DRUGS (3)
  1. LIPICARD AV [Concomitant]
     Indication: PRODUCT USED FOR UNKNOWN INDICATION
  2. TELMISARTAN. [Concomitant]
     Active Substance: TELMISARTAN
     Indication: PRODUCT USED FOR UNKNOWN INDICATION
     Route: 065
  3. VERTEPORFIN [Suspect]
     Active Substance: VERTEPORFIN
     Indication: CHORIORETINOPATHY
     Dosage: 10.8 G IN 5.4 ML WITH 24.6 ML OF 5 PERCENT DEXTROSE
     Route: 042
     Dates: start: 20160525, end: 20160525

REACTIONS (4)
  - Palpitations [Recovered/Resolved]
  - Dyspnoea [Recovered/Resolved]
  - Blood pressure increased [Recovered/Resolved]
  - Abdominal pain upper [Recovered/Resolved]

NARRATIVE: CASE EVENT DATE: 20160525
